FAERS Safety Report 6971103-2 (Version None)
Quarter: 2010Q3

REPORT INFORMATION
  Report Type: 
  Country: None (occurrence: None)
  Receive Date: 20100903
  Receipt Date: 20100819
  Transmission Date: 20110219
  Serious: Yes (Other)
  Sender: FDA-Public Use
  Company Number: JP-SOLVAY-00310004988

PATIENT
  Age: 56 Year
  Sex: Female

DRUGS (7)
  1. LUVOX [Suspect]
     Indication: PRODUCT USED FOR UNKNOWN INDICATION
     Dosage: 50 MILLIGRAM (S) ORAL
     Route: 048
     Dates: start: 20091001
  2. ZOLPIDEM TARTRATE [Concomitant]
  3. RIZE (CLOTIAZEPAM) [Concomitant]
  4. DEPAKENE-R (SODIUM VALPROATE) [Concomitant]
  5. JZOLOFT (SERTRALINE HYDROCHLORIDE) [Concomitant]
  6. BROTIZOLAM (BROTIZOLAM) [Concomitant]
  7. ROHYPNOL (FLUNITRAZEPAM) [Concomitant]

REACTIONS (3)
  - BREAST CALCIFICATIONS [None]
  - BREAST CANCER [None]
  - PARANOIA [None]
